FAERS Safety Report 11461471 (Version 1)
Quarter: 2015Q3

REPORT INFORMATION
  Report Type: Spontaneous
  Country: US (occurrence: US)
  Receive Date: 20150831
  Receipt Date: 20150831
  Transmission Date: 20151125
  Serious: No
  Sender: FDA-Public Use
  Company Number: US-ELI_LILLY_AND_COMPANY-US200912002995

PATIENT
  Age: 55 Year
  Sex: Female

DRUGS (5)
  1. ASMANEX [Concomitant]
     Active Substance: MOMETASONE FUROATE
  2. THYROID [Concomitant]
     Active Substance: LEVOTHYROXINE\LIOTHYRONINE
  3. DIOVAN [Concomitant]
     Active Substance: VALSARTAN
  4. CYMBALTA [Suspect]
     Active Substance: DULOXETINE HYDROCHLORIDE
     Dosage: 60 MG, UNK
     Dates: start: 200810, end: 20091203
  5. XANAX [Concomitant]
     Active Substance: ALPRAZOLAM

REACTIONS (3)
  - Contusion [Unknown]
  - Nail disorder [Unknown]
  - Tinnitus [Unknown]
